FAERS Safety Report 5216580-2 (Version None)
Quarter: 2007Q1

REPORT INFORMATION
  Report Type: 
  Country: None (occurrence: None)
  Receive Date: 20070117
  Receipt Date: 20070109
  Transmission Date: 20070707
  Serious: Yes (Hospitalization)
  Sender: FDA-Public Use
  Company Number: HQWYE974120NOV06

PATIENT
  Age: 50 Year
  Sex: Female

DRUGS (5)
  1. RAPAMUNE [Suspect]
     Indication: PROPHYLAXIS AGAINST TRANSPLANT REJECTION
     Dosage: 5 MG 1X PER 1 DAY
     Route: 048
     Dates: start: 20051125, end: 20060427
  2. LESCOL [Concomitant]
  3. CELLCEPT [Concomitant]
  4. PROGRAF [Concomitant]
  5. PAROXETINE HCL [Concomitant]

REACTIONS (23)
  - ALANINE AMINOTRANSFERASE DECREASED [None]
  - ARTHRITIS [None]
  - BLOOD ALKALINE PHOSPHATASE INCREASED [None]
  - BLOOD BICARBONATE DECREASED [None]
  - BODY TEMPERATURE INCREASED [None]
  - CREATININE RENAL CLEARANCE DECREASED [None]
  - DRUG INEFFECTIVE [None]
  - GAMMA-GLUTAMYLTRANSFERASE INCREASED [None]
  - HAEMOGLOBIN DECREASED [None]
  - IMMUNOSUPPRESSANT DRUG LEVEL INCREASED [None]
  - LIVER FUNCTION TEST ABNORMAL [None]
  - LUNG ADENOCARCINOMA [None]
  - LYMPHADENOPATHY [None]
  - MEDIASTINAL DISORDER [None]
  - METASTASES TO BONE [None]
  - METASTASES TO PLEURA [None]
  - OVERDOSE [None]
  - PCO2 DECREASED [None]
  - PLEURAL EFFUSION [None]
  - PO2 DECREASED [None]
  - PYREXIA [None]
  - TUMOUR INVASION [None]
  - WEIGHT DECREASED [None]
